FAERS Safety Report 23057559 (Version 1)
Quarter: 2023Q4

REPORT INFORMATION
  Report Type: Report from Study
  Country: NL (occurrence: NL)
  Receive Date: 20231012
  Receipt Date: 20231012
  Transmission Date: 20240110
  Serious: Yes (Hospitalization)
  Sender: FDA-Public Use
  Company Number: NL-AstraZeneca-2023A227251

PATIENT
  Age: 239 Day
  Sex: Male
  Weight: 3 kg

DRUGS (1)
  1. SYNAGIS [Suspect]
     Active Substance: PALIVIZUMAB
     Indication: Drug therapy
     Dosage: 15MG/KG, MONTHLY
     Route: 030
     Dates: start: 20230906

REACTIONS (8)
  - Oxygen saturation decreased [Recovered/Resolved]
  - Infant irritability [Recovered/Resolved]
  - Weight gain poor [Not Recovered/Not Resolved]
  - Growth retardation [Not Recovered/Not Resolved]
  - Pyrexia [Recovered/Resolved]
  - Use of accessory respiratory muscles [Recovered/Resolved]
  - Listless [Recovered/Resolved]
  - Vomiting [Recovered/Resolved]

NARRATIVE: CASE EVENT DATE: 20230907
